FAERS Safety Report 6365814-X (Version None)
Quarter: 2009Q3

REPORT INFORMATION
  Report Type: 
  Country: None (occurrence: None)
  Receive Date: 20090919
  Receipt Date: 20090825
  Transmission Date: 20100115
  Serious: No
  Sender: FDA-Public Use
  Company Number: US-ABBOTT-09P-163-0593491-00

PATIENT
  Sex: Female
  Weight: 67.192 kg

DRUGS (3)
  1. HUMIRA [Suspect]
     Indication: PSORIASIS
     Dates: start: 20090201, end: 20090201
  2. HUMIRA [Suspect]
     Dates: start: 20090208, end: 20090208
  3. HUMIRA [Suspect]
     Dates: start: 20090222

REACTIONS (1)
  - INJECTION SITE IRRITATION [None]
